FAERS Safety Report 6086275-4 (Version None)
Quarter: 2009Q1

REPORT INFORMATION
  Report Type: 
  Country: None (occurrence: None)
  Receive Date: 20090220
  Receipt Date: 20090213
  Transmission Date: 20090719
  Serious: Yes (Hospitalization)
  Sender: FDA-Public Use
  Company Number: NL-B.I. PHARMACEUTICALS,INC./RIDGEFIELD-2009-NL-00100NL

PATIENT
  Sex: Female

DRUGS (1)
  1. SIFROL 0.35 MG [Suspect]
     Indication: RESTLESS LEGS SYNDROME
     Dates: start: 20070101

REACTIONS (2)
  - CHEST DISCOMFORT [None]
  - PERICARDIAL FIBROSIS [None]
